FAERS Safety Report 18224602 (Version 2)
Quarter: 2021Q1

REPORT INFORMATION
  Report Type: Spontaneous
  Country: US (occurrence: US)
  Receive Date: 20200902
  Receipt Date: 20210114
  Transmission Date: 20210419
  Serious: Yes (Other)
  Sender: FDA-Public Use
  Company Number: US-GILEAD-2020-0492501

PATIENT
  Sex: Female

DRUGS (1)
  1. VIREAD [Suspect]
     Active Substance: TENOFOVIR DISOPROXIL FUMARATE
     Indication: PRODUCT USED FOR UNKNOWN INDICATION
     Dosage: UNK
     Route: 048
     Dates: start: 2011, end: 2012

REACTIONS (7)
  - Bone density abnormal [Unknown]
  - Chronic kidney disease [Unknown]
  - Emotional distress [Unknown]
  - Bone density decreased [Unknown]
  - Tooth loss [Unknown]
  - Anxiety [Unknown]
  - Anhedonia [Unknown]
